FAERS Safety Report 16191983 (Version 6)
Quarter: 2019Q3

REPORT INFORMATION
  Report Type: Report from Study
  Country: US (occurrence: US)
  Receive Date: 20190412
  Receipt Date: 20190930
  Transmission Date: 20191004
  Serious: Yes (Hospitalization)
  Sender: FDA-Public Use
  Company Number: US-ACTELION-A-NJ2018-167949

PATIENT
  Age: 26 Year
  Sex: Female
  Weight: 81.63 kg

DRUGS (14)
  1. OPSUMIT [Suspect]
     Active Substance: MACITENTAN
     Indication: PULMONARY ARTERIAL HYPERTENSION
     Dosage: 10 MG, QD
     Route: 048
     Dates: start: 20180203
  2. ADCIRCA [Concomitant]
     Active Substance: TADALAFIL
     Dosage: 20 MG, BID
     Dates: start: 2018
  3. FUROSEMIDE. [Concomitant]
     Active Substance: FUROSEMIDE
     Dosage: 20 MG, QD
     Dates: start: 2015
  4. ELIQUIS [Concomitant]
     Active Substance: APIXABAN
     Dosage: 5 MG, QD
  5. VITAMIN D3 [Concomitant]
     Active Substance: CHOLECALCIFEROL
     Dosage: UNK, QD
     Dates: start: 2016
  6. OMEPRAZOLE. [Concomitant]
     Active Substance: OMEPRAZOLE
     Dosage: 40 MG, QD
     Dates: start: 2015
  7. POTASSIUM [Concomitant]
     Active Substance: POTASSIUM
     Dosage: 10 MEQ, QD
     Dates: start: 2015
  8. TOPIRAMATE. [Concomitant]
     Active Substance: TOPIRAMATE
     Dosage: 25 MG, BID
     Dates: start: 2016
  9. TIZANIDINE. [Concomitant]
     Active Substance: TIZANIDINE
     Dosage: 10 MG, PRN
     Dates: start: 2016
  10. WARFARIN [Concomitant]
     Active Substance: WARFARIN
     Dosage: 8 MG, QM,W,F
     Dates: start: 2015, end: 201807
  11. HYDROXYCHLOROQUINE [Concomitant]
     Active Substance: HYDROXYCHLOROQUINE
     Dosage: 200 MG, QD
     Dates: start: 2015
  12. REMODULIN [Suspect]
     Active Substance: TREPROSTINIL
     Indication: PRODUCT USED FOR UNKNOWN INDICATION
     Dosage: UNK
     Route: 065
     Dates: start: 2016
  13. ORENITRAM [Suspect]
     Active Substance: TREPROSTINIL
     Indication: PRODUCT USED FOR UNKNOWN INDICATION
     Dosage: 2.5 MG, TID
     Route: 048
  14. DICYCLOMINE [Concomitant]
     Active Substance: DICYCLOMINE HYDROCHLORIDE
     Dosage: 10 MG, QID PRN
     Dates: start: 2018

REACTIONS (36)
  - Abdominal pain upper [Recovered/Resolved]
  - Iron deficiency anaemia [Recovered/Resolved]
  - Abdominal pain [Unknown]
  - Depression [Unknown]
  - Headache [Recovered/Resolved]
  - Dehydration [Unknown]
  - Migraine [Unknown]
  - Nasopharyngitis [Not Recovered/Not Resolved]
  - Therapy change [Unknown]
  - Transferrin saturation decreased [Not Recovered/Not Resolved]
  - Rash papular [Not Recovered/Not Resolved]
  - Catheter site discharge [Unknown]
  - Dyspnoea [Recovered/Resolved]
  - Anaemia [Unknown]
  - Oral fungal infection [Not Recovered/Not Resolved]
  - Dysphonia [Not Recovered/Not Resolved]
  - Unevaluable event [Unknown]
  - Oedema [Not Recovered/Not Resolved]
  - Nasal congestion [Not Recovered/Not Resolved]
  - Seborrhoea [Recovered/Resolved]
  - Palpitations [Not Recovered/Not Resolved]
  - Anxiety [Unknown]
  - Oropharyngeal pain [Not Recovered/Not Resolved]
  - Hidradenitis [Not Recovered/Not Resolved]
  - Chest pain [Recovered/Resolved]
  - Pain [Recovered/Resolved]
  - Vascular device infection [Unknown]
  - Hypotension [Unknown]
  - Swelling [Not Recovered/Not Resolved]
  - International normalised ratio increased [Recovered/Resolved]
  - Neck pain [Recovered/Resolved]
  - Complication associated with device [Unknown]
  - Device leakage [Recovered/Resolved]
  - Axillary mass [Not Recovered/Not Resolved]
  - Vitamin D deficiency [Not Recovered/Not Resolved]
  - Fatigue [Unknown]

NARRATIVE: CASE EVENT DATE: 2018
